FAERS Safety Report 5655464-2 (Version None)
Quarter: 2008Q1

REPORT INFORMATION
  Report Type: 
  Country: None (occurrence: None)
  Receive Date: 20080219
  Receipt Date: 20080115
  Transmission Date: 20080703
  Serious: No
  Sender: FDA-Public Use
  Company Number: WAES 0801USA03094

PATIENT

DRUGS (3)
  1. JANUVIA [Suspect]
     Dosage: PO
     Route: 048
  2. [THERAPY UNSPECIFIED] [Concomitant]
  3. METFORMIN [Concomitant]

REACTIONS (1)
  - NAUSEA [None]
